FAERS Safety Report 13274633 (Version 1)
Quarter: 2017Q1

REPORT INFORMATION
  Report Type: Spontaneous
  Country: US (occurrence: US)
  Receive Date: 20170227
  Receipt Date: 20170227
  Transmission Date: 20170428
  Serious: Yes (Other)
  Sender: FDA-Public Use
  Company Number: US-ALEXION PHARMACEUTICALS INC.-A201701802

PATIENT
  Age: 6 Month
  Sex: Female

DRUGS (1)
  1. SOLIRIS [Suspect]
     Active Substance: ECULIZUMAB
     Indication: HAEMOLYTIC URAEMIC SYNDROME
     Dosage: UNK
     Route: 042
     Dates: start: 20170211

REACTIONS (4)
  - Pneumococcal infection [Unknown]
  - Nervous system disorder [Unknown]
  - Haemorrhagic infarction [Unknown]
  - Blood lactate dehydrogenase increased [Unknown]
